FAERS Safety Report 20131603 (Version 7)
Quarter: 2023Q1

REPORT INFORMATION
  Report Type: Spontaneous
  Country: JP (occurrence: JP)
  Receive Date: 20211130
  Receipt Date: 20230203
  Transmission Date: 20230418
  Serious: Yes (Hospitalization, Other)
  Sender: FDA-Public Use
  Company Number: JP-OTSUKA-2021_041015

PATIENT
  Age: 2 Year
  Sex: Male

DRUGS (21)
  1. BUSULFEX [Suspect]
     Active Substance: BUSULFAN
     Indication: Chemotherapy
     Dosage: 13.2 MG, QID
     Route: 041
     Dates: start: 20200824, end: 20200827
  2. BUSULFEX [Suspect]
     Active Substance: BUSULFAN
     Indication: Autologous haematopoietic stem cell transplant
  3. BUSULFEX [Suspect]
     Active Substance: BUSULFAN
     Indication: Premedication
  4. BUSULFEX [Suspect]
     Active Substance: BUSULFAN
     Indication: Neuroblastoma
  5. THIOTEPA [Suspect]
     Active Substance: THIOTEPA
     Indication: Chemotherapy
     Dosage: UNK
     Route: 065
  6. THIOTEPA [Suspect]
     Active Substance: THIOTEPA
     Indication: Autologous haematopoietic stem cell transplant
  7. THIOTEPA [Suspect]
     Active Substance: THIOTEPA
     Indication: Premedication
  8. THIOTEPA [Suspect]
     Active Substance: THIOTEPA
     Indication: Neuroblastoma
  9. CYCLOPHOSPHAMIDE [Suspect]
     Active Substance: CYCLOPHOSPHAMIDE
     Indication: Chemotherapy
     Dosage: UNK
     Route: 065
  10. CYCLOPHOSPHAMIDE [Suspect]
     Active Substance: CYCLOPHOSPHAMIDE
     Indication: Autologous haematopoietic stem cell transplant
  11. CYCLOPHOSPHAMIDE [Suspect]
     Active Substance: CYCLOPHOSPHAMIDE
     Indication: Neuroblastoma
  12. MELPHALAN [Suspect]
     Active Substance: MELPHALAN
     Indication: Chemotherapy
     Dosage: UNK
     Route: 065
  13. MELPHALAN [Suspect]
     Active Substance: MELPHALAN
     Indication: Autologous haematopoietic stem cell transplant
  14. MELPHALAN [Suspect]
     Active Substance: MELPHALAN
     Indication: Premedication
  15. MELPHALAN [Suspect]
     Active Substance: MELPHALAN
     Indication: Neuroblastoma
  16. VINCRISTINE SULFATE [Suspect]
     Active Substance: VINCRISTINE SULFATE
     Indication: Chemotherapy
     Dosage: UNK
     Route: 065
  17. VINCRISTINE SULFATE [Suspect]
     Active Substance: VINCRISTINE SULFATE
     Indication: Neuroblastoma
  18. PIRARUBICIN HYDROCHLORIDE [Suspect]
     Active Substance: PIRARUBICIN HYDROCHLORIDE
     Indication: Chemotherapy
     Dosage: UNK
     Route: 065
  19. PIRARUBICIN HYDROCHLORIDE [Suspect]
     Active Substance: PIRARUBICIN HYDROCHLORIDE
     Indication: Neuroblastoma
  20. CISPLATIN [Suspect]
     Active Substance: CISPLATIN
     Indication: Chemotherapy
     Dosage: UNK
     Route: 065
  21. CISPLATIN [Suspect]
     Active Substance: CISPLATIN
     Indication: Neuroblastoma

REACTIONS (7)
  - Chronic kidney disease [Recovering/Resolving]
  - Acute kidney injury [Unknown]
  - Acquired haemophilia [Recovering/Resolving]
  - Pericardial effusion [Unknown]
  - Thrombotic microangiopathy [Recovered/Resolved]
  - Thrombocytopenia [Unknown]
  - Product use in unapproved indication [Unknown]

NARRATIVE: CASE EVENT DATE: 20200901
